FAERS Safety Report 9610833 (Version 1)
Quarter: 2013Q4

REPORT INFORMATION
  Report Type: Spontaneous
  Country: JP (occurrence: JP)
  Receive Date: 20131009
  Receipt Date: 20131009
  Transmission Date: 20140711
  Serious: Yes (Death, Other)
  Sender: FDA-Public Use
  Company Number: JP-TEVA-436557ISR

PATIENT
  Age: 56 Year
  Sex: Male

DRUGS (5)
  1. CARBOPLATIN [Suspect]
     Indication: DIFFUSE LARGE B-CELL LYMPHOMA
     Dosage: 300 MG/M2 FOR 1 HOUR ON DAYS -7 TO -4
     Route: 042
  2. ETOPOSIDE [Suspect]
     Indication: DIFFUSE LARGE B-CELL LYMPHOMA
     Dosage: 500 MG/M2 FOR 3 HOURS ON DAYS -6 TO -4
     Route: 042
  3. RANIMUSTINE [Suspect]
     Indication: DIFFUSE LARGE B-CELL LYMPHOMA
     Dosage: 200 MG/M2 FOR 1 HOUR ON DAYS -8 AND -3
     Route: 042
  4. CYCLOPHOSPHAMIDE [Suspect]
     Indication: DIFFUSE LARGE B-CELL LYMPHOMA
     Dosage: 50 MG/KG FOR 3 HOURS ON DAYS -3 AND -2
     Route: 042
  5. URSODEOXYCHOLIC ACID [Concomitant]
     Indication: PROPHYLAXIS
     Dosage: 600MG FROM DAY -7
     Route: 065

REACTIONS (7)
  - Venoocclusive liver disease [Fatal]
  - Multi-organ failure [Fatal]
  - Hepatic function abnormal [Fatal]
  - Renal impairment [Fatal]
  - Acute lung injury [Not Recovered/Not Resolved]
  - Septic shock [Not Recovered/Not Resolved]
  - Decreased appetite [Not Recovered/Not Resolved]
